FAERS Safety Report 7540044-4 (Version None)
Quarter: 2011Q2

REPORT INFORMATION
  Report Type: 
  Country: None (occurrence: None)
  Receive Date: 20110610
  Receipt Date: 20110603
  Transmission Date: 20111010
  Serious: Yes (Other)
  Sender: FDA-Public Use
  Company Number: CHPA2011US07593

PATIENT
  Age: 85 Year
  Sex: Female
  Weight: 74.83 kg

DRUGS (2)
  1. PREVACID 24 HR [Suspect]
     Indication: OESOPHAGEAL DISORDER
     Dosage: 15 MG, QD
     Route: 048
     Dates: end: 20110602
  2. ANTIHYPERTENSIVES [Concomitant]

REACTIONS (6)
  - FEELING ABNORMAL [None]
  - INCORRECT DRUG ADMINISTRATION DURATION [None]
  - HYPERTENSION [None]
  - OFF LABEL USE [None]
  - MALAISE [None]
  - THERAPEUTIC RESPONSE UNEXPECTED [None]
